FAERS Safety Report 6426251-2 (Version None)
Quarter: 2009Q4

REPORT INFORMATION
  Report Type: 
  Country: None (occurrence: None)
  Receive Date: 20091104
  Receipt Date: 20091027
  Transmission Date: 20100525
  Serious: Yes (Other)
  Sender: FDA-Public Use
  Company Number: US-ROCHE-657083

PATIENT
  Sex: Female
  Weight: 59.9 kg

DRUGS (1)
  1. CAPECITABINE [Suspect]
     Dosage: DOSE: 1250 BID X 14 DAYS EVERY 3 WEEKS
     Route: 048
     Dates: start: 20090730

REACTIONS (2)
  - MALIGNANT NEOPLASM PROGRESSION [None]
  - PALMAR-PLANTAR ERYTHRODYSAESTHESIA SYNDROME [None]
